FAERS Safety Report 5358905-3 (Version None)
Quarter: 2007Q2

REPORT INFORMATION
  Report Type: 
  Country: None (occurrence: None)
  Receive Date: 20070615
  Receipt Date: 20070604
  Transmission Date: 20071010
  Serious: Yes (Hospitalization)
  Sender: FDA-Public Use
  Company Number: B0463531A

PATIENT
  Age: 46 Year
  Sex: Male
  Weight: 56 kg

DRUGS (6)
  1. TELZIR [Suspect]
     Indication: HIV INFECTION
     Dosage: 700MG TWICE PER DAY
     Route: 048
     Dates: start: 20061101
  2. COMBIVIR [Concomitant]
     Indication: HIV INFECTION
     Dosage: 1TAB TWICE PER DAY
     Route: 048
  3. NORVIR [Concomitant]
     Indication: HIV INFECTION
     Dosage: 100MG TWICE PER DAY
     Route: 065
     Dates: start: 20061001
  4. PEGYLATED INTERFERON ALPHA 2B [Concomitant]
     Dosage: .4ML WEEKLY
     Route: 042
  5. NOVONORM [Concomitant]
     Dosage: 2MG THREE TIMES PER DAY
     Route: 065
  6. SPECIAFOLDINE [Concomitant]
     Dosage: 1UNIT PER DAY
     Route: 065

REACTIONS (1)
  - HAEMOLYTIC ANAEMIA [None]
